FAERS Safety Report 22912776 (Version 5)
Quarter: 2023Q4

REPORT INFORMATION
  Report Type: Spontaneous
  Country: IN (occurrence: IN)
  Receive Date: 20230906
  Receipt Date: 20231226
  Transmission Date: 20240109
  Serious: Yes (Other)
  Sender: FDA-Public Use
  Company Number: IN-PFIZER INC-PV202200098345

PATIENT
  Age: 56 Year
  Sex: Female
  Weight: 68 kg

DRUGS (12)
  1. DACOMITINIB [Suspect]
     Active Substance: DACOMITINIB
     Dosage: 30 MG, 1X/DAY 1HR BEFORE MEAL
     Route: 048
     Dates: start: 202210
  2. DOXYCYCLINE [Concomitant]
     Active Substance: DOXYCYCLINE
     Dosage: 100 MG, 1X/DAY
  3. MEGEETRON [Concomitant]
     Dosage: 160 MG, 1X/DAY
  4. DOXYCYCLINE [Concomitant]
     Active Substance: DOXYCYCLINE
     Dosage: UNK
     Dates: start: 202212
  5. PREGABALIN [Concomitant]
     Active Substance: PREGABALIN
     Dosage: UNK
     Dates: start: 202206
  6. HYDROCORTISONE [Concomitant]
     Active Substance: HYDROCORTISONE
     Indication: Rash
     Route: 061
  7. LOPERAMIDE HYDROCHLORIDE [Concomitant]
     Active Substance: LOPERAMIDE HYDROCHLORIDE
     Indication: Diarrhoea
     Dosage: UNK, AS NEEDED
  8. RANITIDINE HYDROCHLORIDE [Concomitant]
     Active Substance: RANITIDINE HYDROCHLORIDE
     Dosage: 150 MG, 2X/DAY
  9. COREX [Concomitant]
     Indication: Cough
     Dosage: 2 TEASPOONFUL (TSF), AS NEEDED
  10. MEGEETRON [Concomitant]
     Dosage: 160 MG, 1X/DAY
  11. PYRIGESIC [Concomitant]
     Indication: Pain
     Dosage: 650 MG, AS NEEDED
  12. LYRICA [Concomitant]
     Active Substance: PREGABALIN
     Dosage: 75 MG, 1X/DAY AT BEDTIME

REACTIONS (7)
  - Carcinoembryonic antigen increased [Unknown]
  - Mucosal inflammation [Unknown]
  - Muscular weakness [Unknown]
  - Rash [Unknown]
  - Skin disorder [Not Recovered/Not Resolved]
  - Decreased appetite [Not Recovered/Not Resolved]
  - Neoplasm progression [Unknown]

NARRATIVE: CASE EVENT DATE: 20221201
